FAERS Safety Report 7037962-2 (Version None)
Quarter: 2010Q4

REPORT INFORMATION
  Report Type: 
  Country: None (occurrence: None)
  Receive Date: 20101011
  Receipt Date: 20101006
  Transmission Date: 20110411
  Serious: Yes (Other)
  Sender: FDA-Public Use
  Company Number: US-BAXTER-2010BH025130

PATIENT
  Age: 28 Year
  Sex: Male

DRUGS (14)
  1. FUROSEMIDE [Suspect]
     Indication: PRODUCT USED FOR UNKNOWN INDICATION
     Route: 042
  2. FUROSEMIDE [Suspect]
     Route: 042
  3. FUROSEMIDE [Suspect]
     Route: 042
  4. SILVER SULFADIAZINE [Suspect]
     Indication: RASH
     Route: 061
  5. AMOXICILLIN [Concomitant]
     Indication: PHARYNGITIS
     Route: 048
  6. ENALAPRIL MALEATE [Concomitant]
     Indication: PRODUCT USED FOR UNKNOWN INDICATION
  7. DIPHENHYDRAMINE [Concomitant]
     Indication: PRODUCT USED FOR UNKNOWN INDICATION
  8. CORTICOSTEROIDS [Concomitant]
     Indication: RASH
     Route: 061
  9. LINCOMYCIN [Concomitant]
     Indication: PHARYNGITIS
     Route: 030
  10. ACETAMINOPHEN [Concomitant]
     Indication: PHARYNGITIS
     Route: 065
  11. CLINDAMYCIN [Concomitant]
     Indication: INFECTION
     Route: 042
  12. LEVOFLOXACIN [Concomitant]
     Indication: INFECTION
     Route: 042
  13. VANCOMYCIN [Concomitant]
     Indication: INFECTION
     Route: 042
  14. CORTICOSTEROIDS FOR SYSTEMIC USE [Concomitant]
     Indication: PRURITUS
     Route: 065

REACTIONS (1)
  - STEVENS-JOHNSON SYNDROME [None]
